FAERS Safety Report 11714569 (Version 5)
Quarter: 2016Q1

REPORT INFORMATION
  Report Type: Spontaneous
  Country: GB (occurrence: GB)
  Receive Date: 20151109
  Receipt Date: 20160201
  Transmission Date: 20160525
  Serious: Yes (Hospitalization)
  Sender: FDA-Public Use
  Company Number: GB-TEVA-605523ACC

PATIENT
  Age: 4 Month
  Sex: Female
  Weight: 2.68 kg

DRUGS (8)
  1. ORAMORPH [Suspect]
     Active Substance: MORPHINE SULFATE
     Route: 065
     Dates: start: 20150523, end: 20150601
  2. AZATHIOPRINE. [Suspect]
     Active Substance: AZATHIOPRINE
     Indication: EXPOSURE DURING PREGNANCY
     Route: 064
  3. ESCITALOPRAM [Suspect]
     Active Substance: ESCITALOPRAM OXALATE
     Indication: EXPOSURE DURING PREGNANCY
     Route: 064
  4. DAKTARIN [Concomitant]
     Active Substance: MICONAZOLE NITRATE
     Indication: PRODUCT USED FOR UNKNOWN INDICATION
     Route: 065
  5. OMEPRAZOLE. [Suspect]
     Active Substance: OMEPRAZOLE
     Indication: EXPOSURE DURING PREGNANCY
     Route: 064
  6. TAPENTADOL [Suspect]
     Active Substance: TAPENTADOL
     Indication: EXPOSURE DURING PREGNANCY
     Dosage: 100 MILLIGRAM DAILY;
     Route: 064
  7. CO-DYDRAMOL [Suspect]
     Active Substance: ACETAMINOPHEN\DIHYDROCODEINE
     Indication: EXPOSURE DURING PREGNANCY
     Dosage: STRENGTH: 10/500
     Route: 064
  8. ORAMORPH [Suspect]
     Active Substance: MORPHINE SULFATE
     Indication: EXPOSURE DURING PREGNANCY
     Dosage: 3-6 PER DAY
     Route: 064

REACTIONS (3)
  - Sepsis neonatal [Unknown]
  - Foetal exposure during pregnancy [Unknown]
  - Drug withdrawal syndrome neonatal [Not Recovered/Not Resolved]
